FAERS Safety Report 6541546-X (Version None)
Quarter: 2010Q1

REPORT INFORMATION
  Report Type: 
  Country: None (occurrence: None)
  Receive Date: 20100119
  Receipt Date: 20091210
  Transmission Date: 20100710
  Serious: Yes (Death)
  Sender: FDA-Public Use
  Company Number: FR-ELI_LILLY_AND_COMPANY-FR200912003206

PATIENT
  Age: 74 Year
  Sex: Female
  Weight: 80 kg

DRUGS (10)
  1. DROTRECOGIN ALFA (ACTIVATED) [Suspect]
     Indication: SEPTIC SHOCK
     Dosage: UNK, UNK
     Route: 042
     Dates: start: 20091209, end: 20091209
  2. EPINEPHRINE [Concomitant]
     Indication: SHOCK
     Dates: start: 20091208
  3. MIDAZOLAM HCL [Concomitant]
     Indication: SEDATION
     Dates: start: 20091208
  4. FENTANYL [Concomitant]
     Indication: SEDATION
     Dates: start: 20091208
  5. INSULIN [Concomitant]
     Indication: HYPERGLYCAEMIA
     Dates: start: 20091208
  6. PARACETAMOL [Concomitant]
     Indication: PYREXIA
     Dates: start: 20091209
  7. IMIPENEM [Concomitant]
     Indication: SEPTIC SHOCK
     Dates: start: 20091208
  8. HYDROCORTISONE [Concomitant]
     Indication: SEPTIC SHOCK
     Dates: start: 20091209
  9. AMIODARONE [Concomitant]
     Indication: TACHYCARDIA
     Dates: start: 20091209
  10. HEPARIN [Concomitant]
     Indication: PROPHYLAXIS
     Dates: start: 20091209

REACTIONS (6)
  - ARRHYTHMIA [None]
  - BRADYCARDIA [None]
  - CARDIAC ARREST [None]
  - ELECTROCARDIOGRAM QRS COMPLEX PROLONGED [None]
  - HYPERKALAEMIA [None]
  - VENTRICULAR FIBRILLATION [None]
